FAERS Safety Report 25512698 (Version 1)
Quarter: 2025Q3

REPORT INFORMATION
  Report Type: Spontaneous
  Country: US (occurrence: US)
  Receive Date: 20250703
  Receipt Date: 20250703
  Transmission Date: 20251020
  Serious: No
  Sender: RADIUS PHARM
  Company Number: US-RADIUS HEALTH INC.-2024US004059

PATIENT
  Sex: Female

DRUGS (1)
  1. TYMLOS [Suspect]
     Active Substance: ABALOPARATIDE
     Indication: Product used for unknown indication
     Dates: start: 202405

REACTIONS (8)
  - Headache [Recovered/Resolved]
  - Head discomfort [Recovered/Resolved]
  - Intentional product misuse [Unknown]
  - Heart rate increased [Recovered/Resolved]
  - Migraine [Recovered/Resolved]
  - Vomiting [Unknown]
  - Asthenia [Unknown]
  - Presyncope [Unknown]

NARRATIVE: CASE EVENT DATE: 20240501
